FAERS Safety Report 12721393 (Version 1)
Quarter: 2016Q3

REPORT INFORMATION
  Report Type: Spontaneous
  Country: US (occurrence: US)
  Receive Date: 20160907
  Receipt Date: 20160907
  Transmission Date: 20161109
  Serious: Yes (Other)
  Sender: FDA-Public Use
  Company Number: US-PFIZER INC-2016374837

PATIENT
  Age: 80 Year
  Sex: Male

DRUGS (16)
  1. AZTREONAM. [Concomitant]
     Active Substance: AZTREONAM
     Indication: WOUND INFECTION
     Dosage: UNK
  2. CIPROFLOXACIN. [Suspect]
     Active Substance: CIPROFLOXACIN
     Indication: PSEUDOMONAS INFECTION
  3. VANCOMYCIN [Concomitant]
     Active Substance: VANCOMYCIN
     Indication: PSEUDOMONAS INFECTION
  4. CIPROFLOXACIN. [Suspect]
     Active Substance: CIPROFLOXACIN
     Indication: WOUND INFECTION
     Dosage: UNK
     Route: 042
  5. VANCOMYCIN [Concomitant]
     Active Substance: VANCOMYCIN
     Indication: WOUND INFECTION
     Dosage: UNK
  6. CIPROFLOXACIN. [Suspect]
     Active Substance: CIPROFLOXACIN
     Indication: PURULENT PERICARDITIS
  7. VANCOMYCIN [Concomitant]
     Active Substance: VANCOMYCIN
     Indication: STAPHYLOCOCCAL INFECTION
  8. RIFAMPIN. [Concomitant]
     Active Substance: RIFAMPIN
     Indication: WOUND INFECTION
     Dosage: UNK
  9. AZTREONAM. [Concomitant]
     Active Substance: AZTREONAM
     Indication: PURULENT PERICARDITIS
  10. METRONIDAZOLE. [Concomitant]
     Active Substance: METRONIDAZOLE
     Indication: PURULENT PERICARDITIS
  11. RIFAMPIN. [Concomitant]
     Active Substance: RIFAMPIN
     Indication: PURULENT PERICARDITIS
  12. RIFAMPIN. [Concomitant]
     Active Substance: RIFAMPIN
     Indication: PSEUDOMONAS INFECTION
  13. VANCOMYCIN [Concomitant]
     Active Substance: VANCOMYCIN
     Indication: PURULENT PERICARDITIS
  14. AZTREONAM. [Concomitant]
     Active Substance: AZTREONAM
     Indication: STAPHYLOCOCCAL INFECTION
  15. METRONIDAZOLE. [Concomitant]
     Active Substance: METRONIDAZOLE
     Indication: WOUND INFECTION
     Dosage: UNK
  16. METRONIDAZOLE. [Concomitant]
     Active Substance: METRONIDAZOLE
     Indication: STAPHYLOCOCCAL INFECTION

REACTIONS (2)
  - Renal vasculitis [Unknown]
  - Glomerulonephritis [Unknown]
